FAERS Safety Report 4543342-1 (Version None)
Quarter: 2005Q1

REPORT INFORMATION
  Report Type: 
  Country: None (occurrence: None)
  Receive Date: 20050103
  Receipt Date: 20031016
  Transmission Date: 20050727
  Serious: Yes (Other)
  Sender: FDA-Public Use
  Company Number: GB-ROCHE-349326

PATIENT
  Age: 33 Year
  Sex: Female
  Weight: 55 kg

DRUGS (3)
  1. ROACCUTANE [Suspect]
     Dosage: PATIENT WAS ON THIS DOSAGE FOR 8 WEEKS.
     Route: 065
     Dates: start: 20020226
  2. ROACCUTANE [Suspect]
     Dosage: PATIENT WAS ON THIS DOSAGE FOR 12 WEEKS.
     Route: 065
  3. THYROXINE [Concomitant]
     Indication: HYPOTHYROIDISM

REACTIONS (8)
  - ARTHRALGIA [None]
  - BONE PAIN [None]
  - DEPRESSION [None]
  - FATIGUE [None]
  - MOOD SWINGS [None]
  - PAIN IN EXTREMITY [None]
  - SOCIAL AVOIDANT BEHAVIOUR [None]
  - SUICIDAL IDEATION [None]
